FAERS Safety Report 8257478-5 (Version None)
Quarter: 2012Q2

REPORT INFORMATION
  Report Type: 
  Country: None (occurrence: None)
  Receive Date: 20120403
  Receipt Date: 20120326
  Transmission Date: 20120825
  Serious: Yes (Hospitalization, Other)
  Sender: FDA-Public Use
  Company Number: PHHY2012DE026341

PATIENT
  Sex: Female
  Weight: 86 kg

DRUGS (11)
  1. LERCANIDIPINE [Suspect]
     Indication: HYPERTENSION
     Dosage: 20 + 25 MG / DAY
     Route: 048
     Dates: start: 20100120, end: 20111114
  2. PANTOPRAZOLE [Suspect]
     Indication: GASTRIC DISORDER
     Dosage: 20 MG/DAY
     Route: 048
     Dates: start: 20100702
  3. RASILEZ [Suspect]
     Indication: HYPERTENSION
     Dosage: 150 MG/DAY
     Route: 048
     Dates: start: 20101011, end: 20110308
  4. SIMVASTATIN [Suspect]
     Dosage: 1 DF, QD
     Route: 048
  5. RASILEZ [Suspect]
     Dosage: 300 MG/DAY
     Route: 048
     Dates: start: 20110309, end: 20111114
  6. QUINAPLUS [Suspect]
     Indication: HYPERTENSION
     Dosage: 20+25 MG/ DAY
     Dates: start: 20091009
  7. TORSEMIDE [Suspect]
     Dosage: 0.5 DF, QD
     Route: 048
  8. MIRTAZAPINE [Suspect]
     Indication: DEPRESSION
  9. METOPROLOL SUCCINATE [Suspect]
     Indication: HYPERTENSION
     Dosage: 200 MG/DAY
     Route: 048
     Dates: start: 20100823
  10. MOXODURA [Suspect]
     Indication: HYPERTENSION
     Dosage: 0.6 MG/DAY
     Route: 048
     Dates: start: 20091112
  11. ASPIRIN [Suspect]
     Indication: ARTERIOSCLEROSIS
     Dosage: 100 MG/DAY
     Route: 048
     Dates: start: 20091009

REACTIONS (3)
  - INFARCTION [None]
  - BLOOD PRESSURE INCREASED [None]
  - CEREBROVASCULAR ACCIDENT [None]
